FAERS Safety Report 5594079-1 (Version None)
Quarter: 2008Q1

REPORT INFORMATION
  Report Type: 
  Country: None (occurrence: None)
  Receive Date: 20080116
  Receipt Date: 20080104
  Transmission Date: 20080703
  Serious: Yes (Other)
  Sender: FDA-Public Use
  Company Number: US-PFIZER INC-2008001677

PATIENT
  Sex: Female

DRUGS (12)
  1. LYRICA [Suspect]
     Indication: FIBROMYALGIA
  2. LYRICA [Suspect]
     Indication: POST HERPETIC NEURALGIA
  3. DUROPHET [Concomitant]
  4. FLUOXETINE [Concomitant]
  5. TIZANIDINE HCL [Concomitant]
  6. TOPAMAX [Concomitant]
  7. BUTALBITAL ACETAMINOPHEN AND CAFFEINE [Concomitant]
  8. CLARITIN-D [Concomitant]
  9. ANTIHISTAMINES [Concomitant]
  10. ADVAIR DISKUS 100/50 [Concomitant]
  11. FLINTSTONES MULTIPLE VITAMINS [Concomitant]
  12. ALPRAZOLAM [Concomitant]

REACTIONS (7)
  - CONFUSIONAL STATE [None]
  - DIZZINESS [None]
  - DRUG INEFFECTIVE [None]
  - FEELING ABNORMAL [None]
  - MUSCLE TWITCHING [None]
  - PRESYNCOPE [None]
  - SPEECH DISORDER [None]
